FAERS Safety Report 8601583-8 (Version None)
Quarter: 2012Q3

REPORT INFORMATION
  Report Type: 
  Country: None (occurrence: None)
  Receive Date: 20120817
  Receipt Date: 20111208
  Transmission Date: 20120928
  Serious: Yes (Hospitalization)
  Sender: FDA-Public Use
  Company Number: US-BRISTOL-MYERS SQUIBB COMPANY-16279978

PATIENT
  Age: 42 Year
  Sex: Male

DRUGS (6)
  1. OXYCODONE HCL [Concomitant]
  2. MORPHINE [Concomitant]
  3. SPRYCEL [Suspect]
     Indication: ACUTE LYMPHOCYTIC LEUKAEMIA
     Dates: start: 20111207
  4. INSULIN [Concomitant]
  5. ACYCLOVIR [Concomitant]
  6. TRAZODONE HCL [Concomitant]

REACTIONS (1)
  - BLOOD CREATININE INCREASED [None]
